FAERS Safety Report 23807880 (Version 1)
Quarter: 2024Q2

REPORT INFORMATION
  Report Type: Spontaneous
  Country: US (occurrence: US)
  Receive Date: 20240502
  Receipt Date: 20240502
  Transmission Date: 20240716
  Serious: Yes (Other)
  Sender: FDA-Public Use
  Company Number: US-ABBVIE-5738386

PATIENT
  Sex: Female

DRUGS (3)
  1. SKYRIZI [Suspect]
     Active Substance: RISANKIZUMAB-RZAA
     Indication: Urticaria
     Route: 058
  2. SKYRIZI [Suspect]
     Active Substance: RISANKIZUMAB-RZAA
     Indication: Psoriasis
  3. XOLAIR [Concomitant]
     Active Substance: OMALIZUMAB
     Indication: Urticaria

REACTIONS (19)
  - Systemic lupus erythematosus [Unknown]
  - Grip strength decreased [Unknown]
  - Carpal tunnel syndrome [Unknown]
  - Attention deficit hyperactivity disorder [Unknown]
  - Arthritis [Unknown]
  - Fatigue [Unknown]
  - Brain fog [Unknown]
  - Pain [Unknown]
  - Pain in extremity [Unknown]
  - Rash [Unknown]
  - Back pain [Unknown]
  - Unevaluable event [Unknown]
  - Mean cell haemoglobin decreased [Unknown]
  - Arthralgia [Unknown]
  - Mean cell haemoglobin concentration decreased [Unknown]
  - Feeling hot [Unknown]
  - Red blood cell sedimentation rate increased [Unknown]
  - Blood creatinine decreased [Unknown]
  - Blood alkaline phosphatase increased [Unknown]

NARRATIVE: CASE EVENT DATE: 20240101
